FAERS Safety Report 4864238-1 (Version None)
Quarter: 2005Q4

REPORT INFORMATION
  Report Type: 
  Country: None (occurrence: None)
  Receive Date: 20051222
  Receipt Date: 20051216
  Transmission Date: 20060501
  Serious: Yes (Life-Threatening)
  Sender: FDA-Public Use
  Company Number: 2005SE07291

PATIENT
  Age: 22689 Day
  Sex: Female

DRUGS (4)
  1. DIPRIVAN [Suspect]
     Indication: GENERAL ANAESTHESIA
     Route: 042
     Dates: start: 20051207, end: 20051207
  2. SUCRALFATE [Concomitant]
     Route: 048
  3. VALSARTAN (VALPRESSION) [Concomitant]
     Route: 048
  4. FENOFIBRATE (FULCRO) [Concomitant]
     Route: 048

REACTIONS (4)
  - ANURIA [None]
  - CYTOLYTIC HEPATITIS [None]
  - HYPOTENSION [None]
  - RENAL FAILURE ACUTE [None]
